FAERS Safety Report 13150231 (Version 1)
Quarter: 2017Q1

REPORT INFORMATION
  Report Type: Report from Study
  Country: US (occurrence: US)
  Receive Date: 20170125
  Receipt Date: 20170125
  Transmission Date: 20170428
  Serious: Yes (Life-Threatening, Hospitalization, Other)
  Sender: FDA-Public Use
  Company Number: US-009507513-1104USA03508

PATIENT
  Age: 79 Year
  Sex: Female
  Weight: 66.22 kg

DRUGS (5)
  1. DEXAMETHASONE. [Suspect]
     Active Substance: DEXAMETHASONE
     Indication: PLASMA CELL MYELOMA
     Dosage: 20 MG, PO ON DAY AFTER VELCADE
     Route: 048
     Dates: start: 20100415, end: 20110119
  2. DECADRON [Suspect]
     Active Substance: DEXAMETHASONE
     Indication: PLASMA CELL MYELOMA
     Dosage: 20 MG, IV ON DAY OF VELCADE
     Route: 042
     Dates: start: 20100415, end: 20110119
  3. VELCADE [Suspect]
     Active Substance: BORTEZOMIB
     Indication: PLASMA CELL MYELOMA
     Dosage: 1.3 MG/M2, ON DAYS 1, 8, 15, 22 ON 35-DAY CYCLE
     Route: 042
     Dates: start: 20100415, end: 20110119
  4. MELPHALAN [Suspect]
     Active Substance: MELPHALAN
     Indication: PLASMA CELL MYELOMA
     Dosage: 9 MG/M2, QD FOR 4 DAYS AT START OF EACH OF FIRST 2 CYCLES
     Route: 048
     Dates: start: 20101021, end: 20110119
  5. PREDNISONE. [Suspect]
     Active Substance: PREDNISONE
     Indication: PLASMA CELL MYELOMA
     Dosage: 80 MG, QD FOR 4 DAYS AT START OF EACH OF FIRST 2 YCLES
     Route: 048
     Dates: start: 20101021, end: 20101211

REACTIONS (9)
  - Epistaxis [Recovered/Resolved]
  - Pyrexia [Recovered/Resolved]
  - Melaena [Recovered/Resolved]
  - Epistaxis [Recovered/Resolved]
  - Sepsis [Recovered/Resolved]
  - Headache [Recovered/Resolved]
  - Pneumonia [Recovered/Resolved]
  - Haematoma [Recovered/Resolved]
  - Epistaxis [Recovered/Resolved]

NARRATIVE: CASE EVENT DATE: 20100506
